FAERS Safety Report 6378566-4 (Version None)
Quarter: 2009Q3

REPORT INFORMATION
  Report Type: 
  Country: None (occurrence: None)
  Receive Date: 20090928
  Receipt Date: 20090914
  Transmission Date: 20100115
  Serious: Yes (Hospitalization)
  Sender: FDA-Public Use
  Company Number: DE-CELGENEUS-062-21880-09081054

PATIENT
  Sex: Female
  Weight: 63.9 kg

DRUGS (4)
  1. REVLIMID [Suspect]
     Indication: MULTIPLE MYELOMA
     Route: 048
     Dates: start: 20090727, end: 20090809
  2. REVLIMID [Suspect]
     Route: 048
     Dates: start: 20090817
  3. DEXAMETHASONE [Suspect]
     Indication: MULTIPLE MYELOMA
     Route: 048
     Dates: start: 20090727, end: 20090809
  4. DEXAMETHASONE [Suspect]
     Route: 048
     Dates: start: 20090824

REACTIONS (3)
  - FACE INJURY [None]
  - FALL [None]
  - SYNCOPE [None]
